FAERS Safety Report 8222251-0 (Version None)
Quarter: 2012Q1

REPORT INFORMATION
  Report Type: 
  Country: None (occurrence: None)
  Receive Date: 20120320
  Receipt Date: 20120315
  Transmission Date: 20120608
  Serious: Yes (Hospitalization)
  Sender: FDA-Public Use
  Company Number: US-GLAXOSMITHKLINE-A0934543A

PATIENT
  Age: 72 Year
  Sex: Female

DRUGS (1)
  1. AVANDIA [Suspect]
     Indication: DIABETES MELLITUS
     Dosage: 4MG PER DAY
     Route: 048
     Dates: start: 20020516, end: 20100803

REACTIONS (4)
  - CARDIAC VALVE DISEASE [None]
  - CARDIAC FAILURE CONGESTIVE [None]
  - HEART VALVE REPLACEMENT [None]
  - PAIN IN EXTREMITY [None]
